FAERS Safety Report 17659878 (Version 1)
Quarter: 2020Q2

REPORT INFORMATION
  Report Type: Spontaneous
  Country: US (occurrence: US)
  Receive Date: 20200413
  Receipt Date: 20200413
  Transmission Date: 20200713
  Serious: No
  Sender: FDA-Public Use
  Company Number: US-GLENMARK PHARMACEUTICALS-2019GMK042759

PATIENT

DRUGS (3)
  1. TOPIRAMATE TABLETS USP, 100 MG [Suspect]
     Active Substance: TOPIRAMATE
     Indication: MIGRAINE PROPHYLAXIS
     Dosage: 100 MG, BID (AND GRADUALLY DECREASED TO 50 MG UNTIL 25 MG)
     Route: 065
  2. TOPIRAMATE TABLETS USP, 100 MG [Suspect]
     Active Substance: TOPIRAMATE
     Dosage: 25 MG, UNK
     Route: 065
  3. TOPIRAMATE TABLETS USP, 100 MG [Suspect]
     Active Substance: TOPIRAMATE
     Dosage: 50 MG, UNK
     Route: 065

REACTIONS (5)
  - Wrong technique in product usage process [Unknown]
  - Poor quality sleep [Recovered/Resolved]
  - Palpitations [Recovered/Resolved]
  - Agitation [Recovered/Resolved]
  - Drug ineffective [Unknown]
